FAERS Safety Report 15185504 (Version 1)
Quarter: 2018Q3

REPORT INFORMATION
  Report Type: Report from Study
  Country: US (occurrence: US)
  Receive Date: 20180723
  Receipt Date: 20180723
  Transmission Date: 20181010
  Serious: Yes (Hospitalization, Other)
  Sender: FDA-Public Use
  Company Number: US-SHIRE-US201725652

PATIENT
  Age: 49 Year
  Sex: Female

DRUGS (2)
  1. GATTEX [Suspect]
     Active Substance: TEDUGLUTIDE\WATER
     Indication: SHORT-BOWEL SYNDROME
     Dosage: 4.2 MG, 1X/DAY:QD
     Route: 058
     Dates: start: 20150217, end: 20170901
  2. GATTEX [Suspect]
     Active Substance: TEDUGLUTIDE\WATER
     Dosage: 4.2 MG, 1X/DAY:QD
     Route: 058
     Dates: start: 20171018

REACTIONS (2)
  - Gallbladder disorder [Not Recovered/Not Resolved]
  - Precancerous cells present [Unknown]

NARRATIVE: CASE EVENT DATE: 20170912
